FAERS Safety Report 13870053 (Version 1)
Quarter: 2017Q3

REPORT INFORMATION
  Report Type: Spontaneous
  Country: CN (occurrence: CN)
  Receive Date: 20170815
  Receipt Date: 20170815
  Transmission Date: 20171127
  Serious: No
  Sender: FDA-Public Use
  Company Number: CN-ELI_LILLY_AND_COMPANY-CN201708001367

PATIENT
  Age: 38 Year
  Sex: Female

DRUGS (2)
  1. LITHIUM CARBONATE. [Concomitant]
     Active Substance: LITHIUM CARBONATE
     Indication: PRODUCT USED FOR UNKNOWN INDICATION
     Dosage: UNK, UNKNOWN
  2. ZYPREXA [Suspect]
     Active Substance: OLANZAPINE
     Indication: PRODUCT USED FOR UNKNOWN INDICATION
     Dosage: UNK, UNKNOWN
     Route: 065

REACTIONS (12)
  - Lymphadenopathy [Unknown]
  - Lymphocyte count increased [Unknown]
  - Dermatitis [Unknown]
  - Mean cell haemoglobin concentration decreased [Unknown]
  - Monocyte percentage decreased [Unknown]
  - Eosinophil count increased [Unknown]
  - Basophil count increased [Unknown]
  - Neutrophil count increased [Unknown]
  - Drug hypersensitivity [Unknown]
  - Red cell distribution width increased [Unknown]
  - White blood cell count increased [Unknown]
  - Eosinophil percentage increased [Unknown]
